FAERS Safety Report 7454926-5 (Version None)
Quarter: 2011Q2

REPORT INFORMATION
  Report Type: 
  Country: None (occurrence: None)
  Receive Date: 20110425
  Receipt Date: 20110411
  Transmission Date: 20111010
  Serious: Yes (Death, Life-Threatening)
  Sender: FDA-Public Use
  Company Number: 2006AL001977

PATIENT
  Age: 1 Day
  Sex: Female

DRUGS (2)
  1. TRANDATE [Concomitant]
  2. FLUOXETINE [Suspect]
     Indication: DRUG EXPOSURE DURING PREGNANCY
     Dosage: 20 MG; QD; TRPL
     Route: 064
     Dates: start: 20050915, end: 20051219

REACTIONS (7)
  - DEATH NEONATAL [None]
  - PERSISTENT FOETAL CIRCULATION [None]
  - CARDIOPULMONARY FAILURE [None]
  - LUNG DISORDER [None]
  - PULMONARY HAEMORRHAGE [None]
  - MATERNAL DRUGS AFFECTING FOETUS [None]
  - ACIDOSIS [None]
